FAERS Safety Report 7478752-6 (Version None)
Quarter: 2011Q2

REPORT INFORMATION
  Report Type: 
  Country: None (occurrence: None)
  Receive Date: 20110513
  Receipt Date: 20110418
  Transmission Date: 20111010
  Serious: Yes (Hospitalization, Other)
  Sender: FDA-Public Use
  Company Number: US-BAYER-201037053NA

PATIENT
  Age: 27 Year
  Sex: Female
  Weight: 77.098 kg

DRUGS (4)
  1. EFFEXOR [Concomitant]
     Dosage: 75 MG, UNK
     Route: 048
  2. VICODIN [Concomitant]
     Dosage: UNK UNK, PRN
     Route: 048
     Dates: start: 20090331
  3. CLONAZEPAM [Concomitant]
     Dosage: 1 MG, UNK
     Route: 048
  4. YASMIN [Suspect]
     Indication: CONTRACEPTION
     Route: 048
     Dates: start: 20080101, end: 20080730

REACTIONS (2)
  - GALLBLADDER DISORDER [None]
  - CHOLECYSTITIS [None]
